FAERS Safety Report 11850808 (Version 2)
Quarter: 2015Q4

REPORT INFORMATION
  Report Type: Spontaneous
  Country: JP (occurrence: JP)
  Receive Date: 20151218
  Receipt Date: 20151221
  Transmission Date: 20160305
  Serious: Yes (Other)
  Sender: FDA-Public Use
  Company Number: JP-009507513-1511JPN012399

PATIENT
  Age: 78 Year
  Sex: Female
  Weight: 51 kg

DRUGS (5)
  1. BENSERAZIDE HYDROCHLORIDE (+) LEVODOPA [Concomitant]
     Active Substance: BENSERAZIDE\LEVODOPA
     Indication: PARKINSON^S DISEASE
     Dosage: 1 DF, ONCE A DAY (LEVODOPA 400MG, BENSERAZIDE 100MG)
     Route: 048
  2. AMANTADINE HYDROCHLORIDE. [Suspect]
     Active Substance: AMANTADINE HYDROCHLORIDE
     Indication: PARKINSON^S DISEASE
     Dosage: 100 MG A DAY (DIVIDED DOSE FREQUENCY UNKNOWN)
     Route: 048
  3. HALOPERIDOL. [Concomitant]
     Active Substance: HALOPERIDOL
     Dosage: 0.75 MG A DAY (DIVIDED DOSE FREQUENCY UNKNOWN)
     Route: 048
  4. CARBIDOPA (+) LEVODOPA [Suspect]
     Active Substance: CARBIDOPA\LEVODOPA
     Indication: PARKINSON^S DISEASE
     Dosage: 1 DF, ONCE A DAY
     Route: 048
  5. DANTRIUM (DANTROLENE SODIUM) [Concomitant]
     Active Substance: DANTROLENE SODIUM
     Indication: NEUROLEPTIC MALIGNANT SYNDROME
     Dosage: 40 MG A DAY (DIVIDED DOSE FREQUENCY UNKNOWN)
     Route: 042

REACTIONS (1)
  - Neuroleptic malignant syndrome [Recovering/Resolving]
